FAERS Safety Report 6139140-8 (Version None)
Quarter: 2009Q2

REPORT INFORMATION
  Report Type: 
  Country: None (occurrence: None)
  Receive Date: 20090401
  Receipt Date: 20090320
  Transmission Date: 20091009
  Serious: Yes (Other)
  Sender: FDA-Public Use
  Company Number: US-PFIZER INC-2008161157

PATIENT
  Sex: Female
  Weight: 47.619 kg

DRUGS (5)
  1. DEPO-MEDROL [Suspect]
     Indication: ROAD TRAFFIC ACCIDENT
     Dosage: UNK
     Dates: start: 20080101
  2. DEPO-MEDROL [Suspect]
     Indication: SOFT TISSUE INJURY
  3. LORCET-HD [Concomitant]
     Indication: PAIN
     Dosage: 10325 MG, 5 TIMES/DAY
  4. DIAZEPAM [Concomitant]
  5. ATIVAN [Concomitant]
     Indication: MUSCLE SPASMS
     Dosage: UNK

REACTIONS (7)
  - ARTHRALGIA [None]
  - CONTUSION [None]
  - FATIGUE [None]
  - HAEMORRHAGE [None]
  - INCORRECT ROUTE OF DRUG ADMINISTRATION [None]
  - MOOD SWINGS [None]
  - PYREXIA [None]
